FAERS Safety Report 17265935 (Version 1)
Quarter: 2020Q1

REPORT INFORMATION
  Report Type: Spontaneous
  Country: BE (occurrence: BE)
  Receive Date: 20200114
  Receipt Date: 20200114
  Transmission Date: 20200409
  Serious: No
  Sender: FDA-Public Use
  Company Number: BE-BEH-2020111703

PATIENT

DRUGS (2)
  1. SANDOGLOBULINE [Suspect]
     Active Substance: HUMAN IMMUNOGLOBULIN G
     Dosage: UNK
     Route: 065
  2. SANDOGLOBULINE [Suspect]
     Active Substance: HUMAN IMMUNOGLOBULIN G
     Dosage: UNK
     Route: 065

REACTIONS (3)
  - Product closure issue [Unknown]
  - Device issue [Unknown]
  - No adverse event [Unknown]
